FAERS Safety Report 5341187-6 (Version None)
Quarter: 2007Q2

REPORT INFORMATION
  Report Type: 
  Country: None (occurrence: None)
  Receive Date: 20070405
  Receipt Date: 20061120
  Transmission Date: 20071010
  Serious: No
  Sender: FDA-Public Use
  Company Number: US200611004645

PATIENT
  Sex: Female

DRUGS (1)
  1. CYMBALTA [Suspect]
     Dosage: 30 MG,

REACTIONS (3)
  - MUSCLE TWITCHING [None]
  - TARDIVE DYSKINESIA [None]
  - TREMOR [None]
